FAERS Safety Report 8728200 (Version 2)
Quarter: 2012Q4

REPORT INFORMATION
  Report Type: Report from Study
  Country: DE (occurrence: DE)
  Receive Date: 20120817
  Receipt Date: 20120903
  Transmission Date: 20130627
  Serious: Yes (Hospitalization)
  Sender: FDA-Public Use
  Company Number: DE-BRISTOL-MYERS SQUIBB COMPANY-16842155

PATIENT
  Age: 60 Year
  Sex: Male

DRUGS (11)
  1. ORENCIA [Suspect]
     Indication: RHEUMATOID ARTHRITIS
     Dosage: To May2011
     Dates: start: 201011, end: 201105
  2. METHOTREXATE [Suspect]
     Indication: RHEUMATOID ARTHRITIS
     Dosage: 14Jan2010, 7Dec10,5Dec2011
     Dates: start: 200611, end: 201106
  3. COTRIM FORTE [Suspect]
     Route: 048
     Dates: start: 201106
  4. PREDNISOLONE [Concomitant]
  5. DICLOFENAC [Concomitant]
     Dosage: 1DF=2-3 tabs per day
  6. ACETYLSALICYLIC ACID [Concomitant]
  7. BISOPROLOL [Concomitant]
  8. COLECALCIFEROL [Concomitant]
     Dosage: 1DF=2000IE
  9. CITALOPRAM [Concomitant]
  10. AMITRIPTYLINE [Concomitant]
  11. PRAVASTATINE [Concomitant]

REACTIONS (2)
  - Whipple^s disease [Recovered/Resolved]
  - Immune reconstitution inflammatory syndrome [Unknown]
